FAERS Safety Report 21373284 (Version 1)
Quarter: 2022Q3

REPORT INFORMATION
  Report Type: Spontaneous
  Country: US (occurrence: None)
  Receive Date: 20220925
  Receipt Date: 20220925
  Transmission Date: 20221027
  Serious: Yes (Other)
  Sender: FDA-Public Use
  Company Number: US-ROCHE-3182971

PATIENT
  Age: 60 Year
  Sex: Male

DRUGS (1)
  1. ERIVEDGE [Suspect]
     Active Substance: VISMODEGIB
     Indication: Neoplasm malignant
     Route: 048
     Dates: start: 202204

REACTIONS (3)
  - Taste disorder [Unknown]
  - Muscle spasms [Unknown]
  - Weight decreased [Unknown]

NARRATIVE: CASE EVENT DATE: 20220501
